FAERS Safety Report 19036111 (Version 2)
Quarter: 2022Q2

REPORT INFORMATION
  Report Type: Other
  Country: US (occurrence: None)
  Receive Date: 20210321
  Receipt Date: 20220420
  Transmission Date: 20220721
  Serious: Yes (Other)
  Sender: FDA-Public Use
  Company Number: US-ROCHE-2766337

PATIENT
  Age: 75 Year
  Sex: Female
  Weight: 57.3 kg

DRUGS (12)
  1. ESBRIET [Suspect]
     Active Substance: PIRFENIDONE
     Indication: Interstitial lung disease
     Route: 048
     Dates: start: 20200617
  2. ESBRIET [Suspect]
     Active Substance: PIRFENIDONE
     Indication: Idiopathic pulmonary fibrosis
     Route: 048
  3. ALBUTEROL SULFATE [Concomitant]
     Active Substance: ALBUTEROL SULFATE
  4. AMLODIPINE [Concomitant]
     Active Substance: AMLODIPINE BESYLATE
  5. ATENOLOL [Concomitant]
     Active Substance: ATENOLOL
  6. BUSPIRONE [Concomitant]
     Active Substance: BUSPIRONE HYDROCHLORIDE
     Dates: start: 20190428
  7. ESTRADIOL [Concomitant]
     Active Substance: ESTRADIOL
  8. LISINOPRIL [Concomitant]
     Active Substance: LISINOPRIL
  9. MECLIZINE [Concomitant]
     Active Substance: MECLIZINE HYDROCHLORIDE
     Dates: start: 20190501
  10. OMEPRAZOLE [Concomitant]
     Active Substance: OMEPRAZOLE
  11. PREDNISONE [Concomitant]
     Active Substance: PREDNISONE
     Dates: start: 20200610
  12. ROSUVASTATIN [Concomitant]
     Active Substance: ROSUVASTATIN

REACTIONS (13)
  - Fall [Unknown]
  - Eosinophilia [Unknown]
  - Hand fracture [Unknown]
  - Intentional product use issue [Unknown]
  - Product supply issue [Unknown]
  - Musculoskeletal pain [Unknown]
  - Chills [Unknown]
  - Night sweats [Unknown]
  - Constipation [Unknown]
  - Sinusitis [Unknown]
  - Seasonal allergy [Unknown]
  - Diarrhoea [Recovered/Resolved]
  - Weight decreased [Unknown]

NARRATIVE: CASE EVENT DATE: 20210101
